FAERS Safety Report 18625954 (Version 1)
Quarter: 2020Q4

REPORT INFORMATION
  Report Type: Spontaneous
  Country: FR (occurrence: FR)
  Receive Date: 20201216
  Receipt Date: 20201216
  Transmission Date: 20210114
  Serious: Yes (Other)
  Sender: FDA-Public Use
  Company Number: FR-PFIZER INC-2020493025

PATIENT
  Age: 15 Year
  Sex: Female

DRUGS (1)
  1. PREGABALIN. [Suspect]
     Active Substance: PREGABALIN
     Dosage: UNK
     Route: 048

REACTIONS (3)
  - Off label use [Unknown]
  - Victim of chemical submission [Unknown]
  - Amnesia [Unknown]

NARRATIVE: CASE EVENT DATE: 20200804
